FAERS Safety Report 4303519-7 (Version None)
Quarter: 2004Q1

REPORT INFORMATION
  Report Type: 
  Country: None (occurrence: None)
  Receive Date: 20040223
  Receipt Date: 20040210
  Transmission Date: 20041129
  Serious: No
  Sender: FDA-Public Use
  Company Number: 2003165568PH

PATIENT
  Sex: Male

DRUGS (1)
  1. BEXTRA [Suspect]
     Indication: BACK PAIN
     Dosage: 40 MG, QD, ORAL
     Route: 048

REACTIONS (2)
  - DIALYSIS [None]
  - RENAL FAILURE ACUTE [None]
